FAERS Safety Report 21534893 (Version 1)
Quarter: 2022Q4

REPORT INFORMATION
  Report Type: Spontaneous
  Country: US (occurrence: US)
  Receive Date: 20221101
  Receipt Date: 20221101
  Transmission Date: 20230113
  Serious: No
  Sender: FDA-Public Use
  Company Number: US-MIGRATION_PFIZER-2022BHV001566

PATIENT
  Age: 19 Year
  Sex: Female

DRUGS (1)
  1. NURTEC ODT [Suspect]
     Active Substance: RIMEGEPANT SULFATE
     Indication: Headache
     Dosage: PREVENTIVE DOSING
     Route: 065
     Dates: start: 202204

REACTIONS (3)
  - Therapeutic product effect incomplete [Unknown]
  - Epistaxis [Unknown]
  - Appendix disorder [Unknown]

NARRATIVE: CASE EVENT DATE: 20220101
